FAERS Safety Report 5264678-5 (Version None)
Quarter: 2007Q1

REPORT INFORMATION
  Report Type: 
  Country: None (occurrence: None)
  Receive Date: 20061124
  Receipt Date: 20060914
  Transmission Date: 20070707
  Serious: Yes (Other)
  Sender: FDA-Public Use
  Company Number: 2006111377

PATIENT
  Sex: Male

DRUGS (1)
  1. CADUET [Suspect]
     Dosage: 5/10 MG, ORAL
     Route: 048

REACTIONS (4)
  - ASTHENIA [None]
  - BLOOD CREATINE PHOSPHOKINASE INCREASED [None]
  - DIZZINESS [None]
  - FLATULENCE [None]
